FAERS Safety Report 8074314-0 (Version None)
Quarter: 2012Q1

REPORT INFORMATION
  Report Type: 
  Country: None (occurrence: None)
  Receive Date: 20120126
  Receipt Date: 20120116
  Transmission Date: 20120608
  Serious: Yes (Death, Hospitalization, Other)
  Sender: FDA-Public Use
  Company Number: NL-COVIDIEN/TYCO HEALTHCARE/MALLINCKRODT-T201102888

PATIENT
  Sex: Male
  Weight: 76 kg

DRUGS (5)
  1. GLIMEPIRIDE [Concomitant]
     Dosage: 7 MG, QD
  2. METFORMIN HCL [Interacting]
     Dosage: 500 MG, QID
  3. OPTIRAY 160 [Suspect]
     Indication: ANGIOGRAM
     Dosage: 250 ML, SINGLE
     Route: 042
     Dates: start: 20111123, end: 20111123
  4. METOPROLOL TARTRATE [Concomitant]
     Dosage: 100 MG, QD
  5. JANUVIA [Concomitant]
     Dosage: 100 MG, QD

REACTIONS (15)
  - DYSPNOEA [None]
  - HYPOTENSION [None]
  - RENAL ARTERY OCCLUSION [None]
  - HYPOTHERMIA [None]
  - ELECTROCARDIOGRAM QT PROLONGED [None]
  - HYPERKALAEMIA [None]
  - DRUG INTERACTION [None]
  - RENAL FAILURE ACUTE [None]
  - NAUSEA [None]
  - NEPHROPATHY TOXIC [None]
  - VOMITING [None]
  - ATRIAL TACHYCARDIA [None]
  - LACTIC ACIDOSIS [None]
  - TOXICITY TO VARIOUS AGENTS [None]
  - ATRIOVENTRICULAR BLOCK FIRST DEGREE [None]
